FAERS Safety Report 5635870-2 (Version None)
Quarter: 2008Q1

REPORT INFORMATION
  Report Type: 
  Country: None (occurrence: None)
  Receive Date: 20080221
  Receipt Date: 20080218
  Transmission Date: 20080703
  Serious: Yes (Hospitalization)
  Sender: FDA-Public Use
  Company Number: 2008SP003450

PATIENT
  Age: 54 Year
  Sex: Female

DRUGS (8)
  1. DESLORATADINE [Suspect]
     Indication: DRUG USE FOR UNKNOWN INDICATION
     Dosage: 1 DF;QD;PO
     Route: 048
  2. LIBRAX [Suspect]
     Indication: DRUG USE FOR UNKNOWN INDICATION
     Dosage: 1 DF;QD;PO
     Route: 048
  3. OMEPRAZOLE [Suspect]
     Indication: DRUG USE FOR UNKNOWN INDICATION
     Dosage: 20 MG;QD;PO
     Route: 048
  4. ABUFENE (BETA-ALANINE) [Suspect]
     Indication: DRUG USE FOR UNKNOWN INDICATION
     Dosage: 2 DF;QD;PO
     Route: 048
  5. VOGALENE (METOPIMAZINE) [Suspect]
     Indication: DRUG USE FOR UNKNOWN INDICATION
     Dosage: PRN;PO
     Route: 048
  6. RODOGYL (RHODOGIL) [Suspect]
     Indication: TOOTH INFECTION
     Dosage: 3 DF;QD;PO
     Route: 048
     Dates: start: 20080116, end: 20080119
  7. PRITOR (NO PREF. NAME) [Suspect]
     Indication: DRUG USE FOR UNKNOWN INDICATION
     Dosage: 1 DF;QD;PO
     Route: 048
  8. SPASFON (SPASFON/00765801/) [Suspect]
     Dosage: 3 DF;QD;PO
     Route: 048

REACTIONS (8)
  - ERYTHEMA [None]
  - HYPOTENSION [None]
  - NAUSEA [None]
  - NO THERAPEUTIC RESPONSE [None]
  - PYREXIA [None]
  - TOOTH INFECTION [None]
  - URTICARIA [None]
  - VOMITING [None]
